FAERS Safety Report 7763218-6 (Version None)
Quarter: 2011Q3

REPORT INFORMATION
  Report Type: 
  Country: None (occurrence: None)
  Receive Date: 20110920
  Receipt Date: 20110919
  Transmission Date: 20111222
  Serious: Yes (Disabling)
  Sender: FDA-Public Use
  Company Number: PHHY2011RO26284

PATIENT
  Sex: Female

DRUGS (2)
  1. ZOMETA [Suspect]
     Indication: BREAST CANCER
     Dosage: 4 MG/5 ML
  2. FASLODEX [Concomitant]

REACTIONS (5)
  - OSTEONECROSIS OF JAW [None]
  - ERYTHEMA [None]
  - PAIN [None]
  - GINGIVAL SWELLING [None]
  - GINGIVAL ULCERATION [None]
